FAERS Safety Report 13624533 (Version 1)
Quarter: 2017Q2

REPORT INFORMATION
  Report Type: Spontaneous
  Country: US (occurrence: US)
  Receive Date: 20170607
  Receipt Date: 20170607
  Transmission Date: 20170830
  Serious: No
  Sender: FDA-Public Use
  Company Number: US-PURDUE-USA-2017-0135945

PATIENT
  Age: 54 Year
  Sex: Female

DRUGS (3)
  1. BUTRANS [Suspect]
     Active Substance: BUPRENORPHINE
     Dosage: 5 MCG/HR, WEEKLY
     Route: 062
     Dates: start: 2015, end: 201610
  2. BUTRANS [Suspect]
     Active Substance: BUPRENORPHINE
     Indication: PAIN
     Dosage: 7.5 MCG/HR, WEEKLY
     Route: 062
     Dates: start: 201610, end: 201701
  3. BUTRANS [Suspect]
     Active Substance: BUPRENORPHINE
     Indication: OSTEOARTHRITIS
     Dosage: (2 X 5 MCG/HR) 10 MCG/HR, WEEKLY
     Route: 062
     Dates: start: 20170117

REACTIONS (4)
  - Pain [Not Recovered/Not Resolved]
  - Drug effect decreased [Not Recovered/Not Resolved]
  - Influenza [Not Recovered/Not Resolved]
  - Product adhesion issue [Unknown]

NARRATIVE: CASE EVENT DATE: 201610
